FAERS Safety Report 9471084 (Version 1)
Quarter: 2013Q3

REPORT INFORMATION
  Report Type: Spontaneous
  Country: US (occurrence: None)
  Receive Date: 20130816
  Receipt Date: 20130816
  Transmission Date: 20140515
  Serious: Yes (Hospitalization)
  Sender: FDA-Public Use
  Company Number: 1842179

PATIENT
  Age: 60 Year
  Sex: Male

DRUGS (2)
  1. NALOXONE HYDROCHLORIDE [Suspect]
     Route: 041
  2. METHADONE [Suspect]
     Route: 048

REACTIONS (9)
  - Iatrogenic injury [None]
  - Drug withdrawal syndrome [None]
  - Stress cardiomyopathy [None]
  - Lethargy [None]
  - Toxicity to various agents [None]
  - Accidental overdose [None]
  - Agitation [None]
  - Tachycardia [None]
  - Hypertension [None]
